FAERS Safety Report 8096500-6 (Version None)
Quarter: 2012Q1

REPORT INFORMATION
  Report Type: 
  Country: None (occurrence: None)
  Receive Date: 20120131
  Receipt Date: 20120125
  Transmission Date: 20120608
  Serious: Yes (Hospitalization, Other)
  Sender: FDA-Public Use
  Company Number: AU-BAYER-2012-007647

PATIENT
  Age: 44 Year
  Sex: Female

DRUGS (2)
  1. CARTIA XT [Concomitant]
     Indication: PRESYNCOPE
  2. MIRENA [Suspect]
     Indication: MENORRHAGIA
     Dosage: UNK
     Dates: start: 20111206, end: 20111218

REACTIONS (8)
  - VAGINAL DISCHARGE [None]
  - PAIN [None]
  - DEVICE BREAKAGE [None]
  - UTERINE HAEMORRHAGE [None]
  - MALAISE [None]
  - PROCEDURAL PAIN [None]
  - STREPTOCOCCAL INFECTION [None]
  - TONSILLITIS STREPTOCOCCAL [None]
